FAERS Safety Report 25640883 (Version 1)
Quarter: 2025Q3

REPORT INFORMATION
  Report Type: Spontaneous
  Country: JP (occurrence: JP)
  Receive Date: 20250804
  Receipt Date: 20250804
  Transmission Date: 20251021
  Serious: Yes (Other)
  Sender: TAKEDA
  Company Number: JP-TAKEDA-2025TUS069017

PATIENT
  Age: 52 Year
  Sex: Male

DRUGS (6)
  1. LIALDA [Suspect]
     Active Substance: MESALAMINE
     Indication: Colitis ulcerative
     Dosage: 4800 MILLIGRAM, QD
  2. OMVOH [Suspect]
     Active Substance: MIRIKIZUMAB-MRKZ
     Indication: Colitis ulcerative
     Dosage: UNK UNK, QD
  3. UPADACITINIB HEMIHYDRATE [Concomitant]
     Active Substance: UPADACITINIB HEMIHYDRATE
     Indication: Psoriatic arthropathy
     Dosage: 5 MILLIGRAM, QD
     Dates: start: 202309, end: 202311
  4. METHOTREXATE [Concomitant]
     Active Substance: METHOTREXATE
     Indication: Psoriatic arthropathy
  5. IGURATIMOD [Concomitant]
     Active Substance: IGURATIMOD
     Indication: Psoriatic arthropathy
  6. GOLIMUMAB [Concomitant]
     Active Substance: GOLIMUMAB
     Indication: Colitis ulcerative

REACTIONS (4)
  - Haematochezia [Unknown]
  - Frequent bowel movements [Recovering/Resolving]
  - Abdominal pain lower [Unknown]
  - Diarrhoea [Unknown]
